FAERS Safety Report 18017441 (Version 1)
Quarter: 2020Q3

REPORT INFORMATION
  Report Type: Spontaneous
  Country: US (occurrence: US)
  Receive Date: 20200714
  Receipt Date: 20200714
  Transmission Date: 20201103
  Serious: Yes (Hospitalization, Other)
  Sender: FDA-Public Use
  Company Number: US-AUROBINDO PHARMA LTD, UK-AUR-APL-2014-07092

PATIENT
  Age: 71 Year
  Sex: Female

DRUGS (1)
  1. TRAMADOL TABLET [Suspect]
     Active Substance: TRAMADOL
     Indication: ARTHRALGIA
     Dosage: 30 DOSAGE FORM, TOOK ABOUT 30 TABLETS
     Route: 048

REACTIONS (11)
  - Hallucination, visual [Recovered/Resolved]
  - Overdose [Recovered/Resolved]
  - Miosis [Recovered/Resolved]
  - Muscular weakness [Recovered/Resolved]
  - Disorientation [Recovered/Resolved]
  - Hallucination, auditory [Recovered/Resolved]
  - Personality disorder [Recovered/Resolved]
  - Mental status changes [Recovered/Resolved]
  - Paranoia [Recovered/Resolved]
  - Persecutory delusion [Recovered/Resolved]
  - Drug withdrawal syndrome [Recovered/Resolved]
